FAERS Safety Report 7525536-6 (Version None)
Quarter: 2011Q2

REPORT INFORMATION
  Report Type: 
  Country: None (occurrence: None)
  Receive Date: 20110606
  Receipt Date: 20110531
  Transmission Date: 20111010
  Serious: Yes (Hospitalization)
  Sender: FDA-Public Use
  Company Number: FR-ROCHE-780197

PATIENT
  Age: 70 Year
  Sex: Male

DRUGS (8)
  1. LEVOTHYROXINE SODIUM [Concomitant]
  2. CACIT D3 [Concomitant]
     Dosage: CACIT VITAMINE D3
  3. HYTACAND [Concomitant]
  4. NEXIUM [Concomitant]
  5. IMODIUM [Concomitant]
  6. ACTEMRA [Suspect]
     Indication: RHEUMATOID ARTHRITIS
     Route: 042
     Dates: start: 20100901, end: 20110420
  7. PREDNISONE [Concomitant]
  8. ACETAMINOPHEN [Concomitant]

REACTIONS (2)
  - RECTAL HAEMORRHAGE [None]
  - COLITIS [None]
